FAERS Safety Report 6434308-5 (Version None)
Quarter: 2009Q4

REPORT INFORMATION
  Report Type: 
  Country: None (occurrence: None)
  Receive Date: 20091110
  Receipt Date: 20090108
  Transmission Date: 20100525
  Serious: No
  Sender: FDA-Public Use
  Company Number: US-ASTRAZENECA-2009UW18246

PATIENT
  Sex: Female

DRUGS (7)
  1. PRILOSEC OTC [Suspect]
     Dosage: 2 TABLET, 1 ONLY
     Route: 048
     Dates: start: 20090108, end: 20090108
  2. LORAZEPAM [Concomitant]
     Dosage: UNKNOWN
  3. DITROPAN [Concomitant]
     Dosage: UNKNOWN
  4. PLAQUENIL [Concomitant]
     Dosage: UNKNOWN
  5. WELLBUTRIN [Concomitant]
     Dosage: UNKNOWN
  6. PROZAC [Concomitant]
     Dosage: UNKNOWN
  7. CELEBREX [Concomitant]
     Dosage: UNKNOWN

REACTIONS (3)
  - ACCIDENTAL EXPOSURE [None]
  - HEADACHE [None]
  - INCORRECT DOSE ADMINISTERED [None]
